FAERS Safety Report 10716167 (Version 1)
Quarter: 2015Q1

REPORT INFORMATION
  Report Type: Report from Study
  Country: MX (occurrence: MX)
  Receive Date: 20150116
  Receipt Date: 20150116
  Transmission Date: 20150721
  Serious: Yes (Life-Threatening)
  Sender: FDA-Public Use
  Company Number: MX-JNJFOC-20150105698

PATIENT
  Age: 73 Year
  Sex: Female

DRUGS (2)
  1. XARELTO [Suspect]
     Active Substance: RIVAROXABAN
     Indication: MYOCARDIAL ISCHAEMIA
     Route: 048
     Dates: start: 20141217, end: 20150107
  2. XARELTO [Suspect]
     Active Substance: RIVAROXABAN
     Indication: MYOCARDIAL ISCHAEMIA
     Route: 048
     Dates: start: 20130927

REACTIONS (1)
  - Off label use [Recovered/Resolved]

NARRATIVE: CASE EVENT DATE: 20141217
